FAERS Safety Report 16125605 (Version 1)
Quarter: 2019Q1

REPORT INFORMATION
  Report Type: Spontaneous
  Country: US (occurrence: US)
  Receive Date: 20190328
  Receipt Date: 20190328
  Transmission Date: 20190418
  Serious: No
  Sender: FDA-Public Use
  Company Number: US-ASTRAZENECA-2019SE35728

PATIENT
  Sex: Female

DRUGS (1)
  1. BRILINTA [Suspect]
     Active Substance: TICAGRELOR
     Indication: MYOCARDIAL INFARCTION
     Dosage: UNKNOWN
     Route: 048

REACTIONS (6)
  - Intervertebral disc protrusion [Unknown]
  - Spinal compression fracture [Unknown]
  - Inflammation [Not Recovered/Not Resolved]
  - Back pain [Unknown]
  - Sciatica [Unknown]
  - Rheumatoid arthritis [Not Recovered/Not Resolved]
